FAERS Safety Report 17174844 (Version 1)
Quarter: 2019Q4

REPORT INFORMATION
  Report Type: Spontaneous
  Country: US (occurrence: US)
  Receive Date: 20191219
  Receipt Date: 20191219
  Transmission Date: 20200122
  Serious: No
  Sender: FDA-Public Use
  Company Number: US-UCBSA-121557

PATIENT
  Age: 42 Year
  Sex: Female
  Weight: 74.84 kg

DRUGS (2)
  1. CIMZIA [Suspect]
     Active Substance: CERTOLIZUMAB PEGOL
     Indication: CROHN^S DISEASE
     Dosage: 400 MG, EV 4 WEEKS
     Route: 058
     Dates: start: 20140513, end: 2014
  2. HUMIRA [Concomitant]
     Active Substance: ADALIMUMAB

REACTIONS (9)
  - Arthralgia [Not Recovered/Not Resolved]
  - Rash [Not Recovered/Not Resolved]
  - Abdominal pain upper [Not Recovered/Not Resolved]
  - Ocular discomfort [Not Recovered/Not Resolved]
  - Influenza like illness [Not Recovered/Not Resolved]
  - Micturition disorder [Not Recovered/Not Resolved]
  - Vision blurred [Recovered/Resolved]
  - Headache [Not Recovered/Not Resolved]
  - Blister [Not Recovered/Not Resolved]

NARRATIVE: CASE EVENT DATE: 201405
